FAERS Safety Report 21985136 (Version 1)
Quarter: 2023Q1

REPORT INFORMATION
  Report Type: Spontaneous
  Country: GB (occurrence: GB)
  Receive Date: 20230213
  Receipt Date: 20230213
  Transmission Date: 20230417
  Serious: Yes (Hospitalization, Other)
  Sender: FDA-Public Use
  Company Number: GB-MHRA-MED-202302021506270480-FDZJC

PATIENT
  Age: 39 Year
  Sex: Female

DRUGS (4)
  1. DEXAMETHASONE [Suspect]
     Active Substance: DEXAMETHASONE
     Indication: Adverse drug reaction
     Dosage: SINGLE DOSE
     Route: 065
     Dates: start: 20230123
  2. OXALIPLATIN [Suspect]
     Active Substance: OXALIPLATIN
     Indication: Product used for unknown indication
     Dosage: OXALIPLATIN 200MG IN 250ML OF GLUCOSE VIA IV INFUSION OVER 2 HOURS
     Route: 042
  3. PALONOSETRON [Suspect]
     Active Substance: PALONOSETRON
     Indication: Product used for unknown indication
     Dosage: 0.5MG ; THERAPY END DATE : NOT ASKED, PALONOSETRON 0.5MG/NETUPITANT 300MG (AKYNZEO) ORAL CAPSULE AS
     Route: 048
     Dates: start: 20230123
  4. ATROPINE [Suspect]
     Active Substance: ATROPINE
     Indication: Cholinergic syndrome
     Dosage: ATROPINE 0.25MG, PRN FOR ACUTE CHOLINERGIC SYNDROME DUE TO IRINOTECAN
     Route: 058

REACTIONS (3)
  - Colitis [Recovering/Resolving]
  - Neutropenic sepsis [Recovering/Resolving]
  - Colitis [Recovering/Resolving]

NARRATIVE: CASE EVENT DATE: 20230123
